FAERS Safety Report 21333773 (Version 1)
Quarter: 2022Q3

REPORT INFORMATION
  Report Type: Report from Study
  Country: DE (occurrence: DE)
  Receive Date: 20220914
  Receipt Date: 20220914
  Transmission Date: 20221026
  Serious: Yes (Hospitalization)
  Sender: FDA-Public Use
  Company Number: DE-NOVPHSZ-PHHY2019DE016116

PATIENT
  Sex: Female

DRUGS (11)
  1. UNSPECIFIED INGREDIENT [Suspect]
     Active Substance: UNSPECIFIED INGREDIENT
     Dosage: NO DOSE GIVEN
  2. METHOTREXATE SODIUM [Suspect]
     Active Substance: METHOTREXATE SODIUM
     Indication: Rheumatoid arthritis
     Dosage: 12.5 MG
     Route: 065
     Dates: start: 20160303
  3. METHOTREXATE SODIUM [Suspect]
     Active Substance: METHOTREXATE SODIUM
     Dosage: 12.5 MG
     Route: 065
     Dates: start: 20160623
  4. METHOTREXATE SODIUM [Suspect]
     Active Substance: METHOTREXATE SODIUM
     Dosage: 12.5 MG
     Route: 065
     Dates: start: 20160929
  5. METHOTREXATE SODIUM [Suspect]
     Active Substance: METHOTREXATE SODIUM
     Dosage: 12.5 MG
     Route: 065
     Dates: start: 20170426
  6. METHOTREXATE SODIUM [Suspect]
     Active Substance: METHOTREXATE SODIUM
     Dosage: 12.5 MG
     Route: 065
     Dates: start: 20171010
  7. METHOTREXATE SODIUM [Suspect]
     Active Substance: METHOTREXATE SODIUM
     Dosage: 12.5 MG
     Route: 065
     Dates: start: 20180328
  8. METHOTREXATE SODIUM [Suspect]
     Active Substance: METHOTREXATE SODIUM
     Dosage: 12.5 MG
     Route: 065
     Dates: start: 20180828
  9. METHOTREXATE SODIUM [Suspect]
     Active Substance: METHOTREXATE SODIUM
     Dosage: 12.5 MG
     Route: 065
     Dates: start: 20190227
  10. METHOTREXATE SODIUM [Suspect]
     Active Substance: METHOTREXATE SODIUM
     Dosage: 12.5 MG
     Route: 065
     Dates: start: 20190904
  11. CIMZIA [Suspect]
     Active Substance: CERTOLIZUMAB PEGOL
     Indication: Rheumatoid arthritis
     Dosage: 200 MG
     Route: 065
     Dates: start: 201603, end: 201604

REACTIONS (9)
  - Respiratory tract infection [Recovered/Resolved]
  - Bradycardia [Unknown]
  - Abdominal pain lower [Recovered/Resolved]
  - Renal neoplasm [Recovered/Resolved]
  - Diverticulum [Recovered/Resolved]
  - Sensory level abnormal [Recovered/Resolved]
  - Hypertensive heart disease [Recovered/Resolved]
  - Hypertensive crisis [Recovered/Resolved]
  - Coordination abnormal [Recovered/Resolved]

NARRATIVE: CASE EVENT DATE: 20180113
